FAERS Safety Report 13797940 (Version 12)
Quarter: 2021Q2

REPORT INFORMATION
  Report Type: Report from Study
  Country: US (occurrence: US)
  Receive Date: 20170727
  Receipt Date: 20210421
  Transmission Date: 20210716
  Serious: Yes (Hospitalization)
  Sender: FDA-Public Use
  Company Number: US-ROCHE-1965568

PATIENT
  Age: 65 Year
  Sex: Male
  Weight: 73.84 kg

DRUGS (22)
  1. CISPLATIN. [Suspect]
     Active Substance: CISPLATIN
     Indication: NON-SMALL CELL LUNG CANCER
     Dosage: MOST RECENT DOSE PRIOR TO SYNCOPE ON 06/JUN/2017 139 MG?STARTING DOSE: 75 MG/M2 ON DAY 1 OF EACH OF
     Route: 042
     Dates: start: 20170404
  2. FENOFIBRATE. [Concomitant]
     Active Substance: FENOFIBRATE
     Indication: HYPERCHOLESTEROLAEMIA
     Dates: start: 201602
  3. NORMAL SALINE [Concomitant]
     Active Substance: SODIUM CHLORIDE
     Dates: start: 20170523, end: 20170523
  4. PHENERGAN [Concomitant]
     Active Substance: PROMETHAZINE HYDROCHLORIDE
     Indication: NAUSEA
     Dates: start: 20170523
  5. KYTRIL [Concomitant]
     Active Substance: GRANISETRON HYDROCHLORIDE
     Indication: NAUSEA
     Dates: start: 20170630, end: 20170630
  6. KYTRIL [Concomitant]
     Active Substance: GRANISETRON HYDROCHLORIDE
     Indication: SYNCOPE
     Dosage: FOR SYNCOPE
     Dates: start: 20170721, end: 20170721
  7. NORTRIPTYLINE [Concomitant]
     Active Substance: NORTRIPTYLINE
     Indication: ANXIETY
     Dates: start: 2007
  8. CRESTOR [Concomitant]
     Active Substance: ROSUVASTATIN CALCIUM
     Indication: HYPERCHOLESTEROLAEMIA
     Dates: start: 20170618
  9. GEMCITABINE. [Suspect]
     Active Substance: GEMCITABINE
     Indication: NON-SMALL CELL LUNG CANCER
     Dosage: MOST RECENT DOSE PRIOR TO SYNCOPE ON 13/JUN/2017 (2313 MG)?MOST RECENT DOSE PRIOR TO SYNCOPE ON 11/A
     Route: 042
     Dates: start: 20170404
  10. PHENERGAN [Concomitant]
     Active Substance: PROMETHAZINE HYDROCHLORIDE
     Indication: SYNCOPE
     Dosage: FOR SYNCOPE
     Dates: start: 20170721, end: 20170721
  11. TRAZODONE [Concomitant]
     Active Substance: TRAZODONE HYDROCHLORIDE
     Indication: INSOMNIA
  12. ATORVASTIN [Concomitant]
     Active Substance: ATORVASTATIN
     Indication: HYPERCHOLESTEROLAEMIA
     Dates: start: 2004
  13. NORTRIPTYLINE [Concomitant]
     Active Substance: NORTRIPTYLINE
     Indication: INSOMNIA
  14. COLACE [Concomitant]
     Active Substance: DOCUSATE SODIUM
     Indication: CONSTIPATION
     Dates: start: 20170519
  15. CARDIZEM [Concomitant]
     Active Substance: DILTIAZEM HYDROCHLORIDE
     Dates: start: 20170704
  16. TRAZODONE [Concomitant]
     Active Substance: TRAZODONE HYDROCHLORIDE
     Indication: ANXIETY
     Dates: start: 20170310
  17. MILK OF MAGNESIA [Concomitant]
     Active Substance: MAGNESIUM HYDROXIDE
     Indication: CONSTIPATION
     Dates: start: 20170519
  18. CARDIZEM [Concomitant]
     Active Substance: DILTIAZEM HYDROCHLORIDE
     Indication: HYPERTENSION
     Dates: start: 20170519
  19. COMPAZINE [Concomitant]
     Active Substance: PROCHLORPERAZINE MALEATE
     Indication: NAUSEA
     Dates: start: 20170627, end: 20170627
  20. NORMAL SALINE [Concomitant]
     Active Substance: SODIUM CHLORIDE
     Indication: DEHYDRATION
     Dates: start: 20170721, end: 20170721
  21. ATEZOLIZUMAB. [Suspect]
     Active Substance: ATEZOLIZUMAB
     Indication: NON-SMALL CELL LUNG CANCER
     Dosage: MOST RECENT DOSE PRIOR TO SYNCOPE ON 21/JUL/2017 1200 MG
     Route: 041
     Dates: start: 20170630
  22. NORMAL SALINE [Concomitant]
     Active Substance: SODIUM CHLORIDE
     Indication: ASTHENIA
     Dates: start: 20170517, end: 20170517

REACTIONS (2)
  - Syncope [Recovered/Resolved]
  - Tachycardia [Recovered/Resolved]

NARRATIVE: CASE EVENT DATE: 20170411
